FAERS Safety Report 19007325 (Version 1)
Quarter: 2021Q1

REPORT INFORMATION
  Report Type: Spontaneous
  Country: US (occurrence: US)
  Receive Date: 20210315
  Receipt Date: 20210315
  Transmission Date: 20210420
  Serious: Yes (Hospitalization)
  Sender: FDA-Public Use
  Company Number: None

PATIENT
  Age: 58 Year
  Sex: Female
  Weight: 41.6 kg

DRUGS (12)
  1. VALGANCICLOVIR. [Concomitant]
     Active Substance: VALGANCICLOVIR
  2. TACROLIMUS. [Suspect]
     Active Substance: TACROLIMUS
     Route: 048
  3. LINAGLIPTIN [Concomitant]
     Active Substance: LINAGLIPTIN
  4. ELIQUIS [Concomitant]
     Active Substance: APIXABAN
  5. ACETAMINOPHEN. [Concomitant]
     Active Substance: ACETAMINOPHEN
  6. GABAPENTIN. [Concomitant]
     Active Substance: GABAPENTIN
  7. ATOVAQUONE. [Concomitant]
     Active Substance: ATOVAQUONE
  8. PREDNISONE. [Concomitant]
     Active Substance: PREDNISONE
  9. PRAVASTATIN. [Concomitant]
     Active Substance: PRAVASTATIN
  10. MYCOPHENOLATE SUSPENSION [Suspect]
     Active Substance: MYCOPHENOLIC ACID
     Indication: PROPHYLAXIS AGAINST TRANSPLANT REJECTION
     Route: 048
  11. ASPIRIN 81 [Concomitant]
     Active Substance: ASPIRIN
  12. PANTOPRAZOLE [Concomitant]
     Active Substance: PANTOPRAZOLE

REACTIONS (3)
  - Fungal sepsis [None]
  - Bronchopulmonary aspergillosis [None]
  - Neutropenia [None]

NARRATIVE: CASE EVENT DATE: 20210204
